FAERS Safety Report 8014442-9 (Version None)
Quarter: 2011Q4

REPORT INFORMATION
  Report Type: 
  Country: None (occurrence: None)
  Receive Date: 20111229
  Receipt Date: 20111221
  Transmission Date: 20120403
  Serious: Yes (Hospitalization)
  Sender: FDA-Public Use
  Company Number: IT-BAXTER-2011BH040540

PATIENT
  Sex: Female

DRUGS (2)
  1. ARTISS [Suspect]
     Indication: FACE LIFT
     Route: 065
  2. ARTISS [Suspect]
     Indication: OFF LABEL USE
     Route: 065

REACTIONS (1)
  - DRUG INEFFECTIVE [None]
